FAERS Safety Report 7462422-4 (Version None)
Quarter: 2011Q2

REPORT INFORMATION
  Report Type: 
  Country: None (occurrence: None)
  Receive Date: 20110506
  Receipt Date: 20110429
  Transmission Date: 20111010
  Serious: Yes (Hospitalization)
  Sender: FDA-Public Use
  Company Number: FR-NOVOPROD-325575

PATIENT
  Age: 86 Year
  Sex: Male

DRUGS (6)
  1. LANTUS [Concomitant]
  2. ZANIDIP [Concomitant]
  3. MOPRAL                             /00661201/ [Concomitant]
  4. CORDARONE [Concomitant]
  5. REPAGLINIDE [Suspect]
     Indication: TYPE 2 DIABETES MELLITUS
     Dosage: 2 MG, QD
     Route: 048
     Dates: end: 20110104
  6. LEVOTHYROX [Concomitant]

REACTIONS (2)
  - PRURITUS [None]
  - RASH MACULO-PAPULAR [None]
